FAERS Safety Report 10301084 (Version 3)
Quarter: 2014Q4

REPORT INFORMATION
  Report Type: Spontaneous
  Country: US (occurrence: US)
  Receive Date: 20140714
  Receipt Date: 20141105
  Transmission Date: 20150528
  Serious: Yes (Disabling)
  Sender: FDA-Public Use
  Company Number: US-BEH-2014043725

PATIENT
  Sex: Female

DRUGS (1)
  1. ZEMAIRA [Suspect]
     Active Substance: .ALPHA.1-PROTEINASE INHIBITOR HUMAN

REACTIONS (17)
  - Renal disorder [Unknown]
  - Haemorrhage [Unknown]
  - Uterine cystectomy [Unknown]
  - Uterine cyst [Unknown]
  - Cardiac disorder [Unknown]
  - Uterine cyst [Unknown]
  - Autoimmune disorder [Unknown]
  - Eye disorder [Unknown]
  - Blindness [Unknown]
  - Diplopia [Unknown]
  - Bronchitis [Unknown]
  - Exophthalmos [Unknown]
  - Uterine cystectomy [Unknown]
  - Liver disorder [Unknown]
  - Dyspnoea [Unknown]
  - Craniofacial deformity [Unknown]
  - Hepatic pain [Unknown]

NARRATIVE: CASE EVENT DATE: 2013
